FAERS Safety Report 6507706-9 (Version None)
Quarter: 2009Q4

REPORT INFORMATION
  Report Type: 
  Country: None (occurrence: None)
  Receive Date: 20091201
  Receipt Date: 20090223
  Transmission Date: 20100525
  Serious: Yes (Hospitalization)
  Sender: FDA-Public Use
  Company Number: 2009-192275-NL

PATIENT
  Age: 53 Year
  Sex: Female
  Weight: 48.1 kg

DRUGS (2)
  1. NUVARING [Suspect]
     Indication: CONTRACEPTION
     Dosage: VAG
     Route: 067
     Dates: start: 20041101
  2. LEVOTHYROXINE [Concomitant]

REACTIONS (1)
  - PULMONARY EMBOLISM [None]
